FAERS Safety Report 7831016-0 (Version None)
Quarter: 2011Q4

REPORT INFORMATION
  Report Type: 
  Country: None (occurrence: None)
  Receive Date: 20111021
  Receipt Date: 20111018
  Transmission Date: 20120403
  Serious: Yes (Hospitalization)
  Sender: FDA-Public Use
  Company Number: FR-PFIZER INC-2011249671

PATIENT
  Age: 65 Year
  Weight: 124 kg

DRUGS (1)
  1. SUNITINIB MALATE [Suspect]
     Indication: THYROID CANCER
     Dosage: 25 MG, 1X/DAY
     Dates: start: 20100403, end: 20110913

REACTIONS (1)
  - SEPSIS [None]
